FAERS Safety Report 5253895-6 (Version None)
Quarter: 2007Q1

REPORT INFORMATION
  Report Type: 
  Country: None (occurrence: None)
  Receive Date: 20070228
  Receipt Date: 20070228
  Transmission Date: 20070707
  Serious: Yes (Life-Threatening, Hospitalization)
  Sender: FDA-Public Use
  Company Number: None

PATIENT
  Age: 51 Year
  Sex: Male
  Weight: 77.1 kg

DRUGS (4)
  1. TYSABRI [Suspect]
     Indication: MULTIPLE SCLEROSIS
     Dosage: STANDARD  ONCE  IV
     Route: 042
     Dates: start: 20070202
  2. LIPITOR [Concomitant]
  3. ALTACE [Concomitant]
  4. ADDERALL 10 [Concomitant]

REACTIONS (1)
  - NEAR DROWNING [None]
